FAERS Safety Report 7945361-1 (Version None)
Quarter: 2011Q4

REPORT INFORMATION
  Report Type: 
  Country: None (occurrence: None)
  Receive Date: 20111129
  Receipt Date: 20110504
  Transmission Date: 20120403
  Serious: No
  Sender: FDA-Public Use
  Company Number: US-GLAXOSMITHKLINE-A0925794A

PATIENT
  Age: 62 Year
  Sex: Male

DRUGS (5)
  1. RAMIPRIL [Concomitant]
  2. ASPIRIN [Concomitant]
  3. WELLBUTRIN SR [Suspect]
     Indication: DISTURBANCE IN ATTENTION
     Dosage: 150MG TWICE PER DAY
     Route: 048
     Dates: start: 20110201
  4. PRAVACHOL [Concomitant]
  5. COREG [Concomitant]

REACTIONS (1)
  - ANXIETY [None]
